FAERS Safety Report 8207065-X (Version None)
Quarter: 2012Q1

REPORT INFORMATION
  Report Type: 
  Country: None (occurrence: None)
  Receive Date: 20120314
  Receipt Date: 20120306
  Transmission Date: 20120608
  Serious: Yes (Other)
  Sender: FDA-Public Use
  Company Number: US-BAYER-2011-030915

PATIENT
  Age: 17 Year
  Sex: Female
  Weight: 63.492 kg

DRUGS (4)
  1. MINOCIN [Concomitant]
  2. NAPROSYN [Concomitant]
  3. ACCUTANE [Concomitant]
  4. YAZ [Suspect]
     Indication: ACNE
     Dosage: UNK
     Route: 048
     Dates: start: 20080322, end: 20090312

REACTIONS (6)
  - INJURY [None]
  - ANHEDONIA [None]
  - DEEP VEIN THROMBOSIS [None]
  - ANXIETY [None]
  - PAIN [None]
  - PAIN IN EXTREMITY [None]
